FAERS Safety Report 11959516 (Version 1)
Quarter: 2016Q1

REPORT INFORMATION
  Report Type: Spontaneous
  Country: TR (occurrence: TR)
  Receive Date: 20160126
  Receipt Date: 20160126
  Transmission Date: 20160526
  Serious: Yes (Other)
  Sender: FDA-Public Use
  Company Number: TR-SA-2016SA009612

PATIENT
  Age: 32 Year
  Sex: Female

DRUGS (3)
  1. SEVELAMER SALT NOT SPECIFIED [Suspect]
     Active Substance: SEVELAMER
     Indication: TUBULOINTERSTITIAL NEPHRITIS
     Route: 065
  2. VITAMIN D [Suspect]
     Active Substance: CHOLECALCIFEROL
     Indication: TUBULOINTERSTITIAL NEPHRITIS
     Route: 048
  3. CINACALCET HYDROCHLORIDE [Suspect]
     Active Substance: CINACALCET HYDROCHLORIDE
     Indication: TUBULOINTERSTITIAL NEPHRITIS
     Route: 065

REACTIONS (1)
  - Blood parathyroid hormone increased [Recovered/Resolved]
